FAERS Safety Report 5127135-2 (Version None)
Quarter: 2006Q4

REPORT INFORMATION
  Report Type: 
  Country: None (occurrence: None)
  Receive Date: 20061013
  Receipt Date: 20061002
  Transmission Date: 20070319
  Serious: Yes (Other)
  Sender: FDA-Public Use
  Company Number: 2006AP04647

PATIENT
  Age: 22506 Day
  Sex: Female

DRUGS (7)
  1. IRESSA [Suspect]
     Indication: LUNG NEOPLASM MALIGNANT
     Route: 048
     Dates: start: 20040621, end: 20050314
  2. IRESSA [Suspect]
     Route: 048
     Dates: start: 20051102, end: 20060110
  3. IRESSA [Suspect]
     Route: 048
     Dates: start: 20060111, end: 20060405
  4. IRESSA [Suspect]
     Route: 048
     Dates: end: 20060608
  5. IRESSA [Suspect]
     Route: 048
     Dates: start: 20060609
  6. PACLITAXEL [Concomitant]
     Dosage: 3 COURSES PERFORMED
     Dates: start: 20040122
  7. CARBOPLATIN [Concomitant]
     Dosage: AUC=6, 3 COURSES PERFORMED

REACTIONS (8)
  - ALANINE AMINOTRANSFERASE INCREASED [None]
  - ASPARTATE AMINOTRANSFERASE INCREASED [None]
  - DIARRHOEA [None]
  - HAEMOLYTIC ANAEMIA [None]
  - NAUSEA [None]
  - PLEURAL EFFUSION [None]
  - RASH [None]
  - VOMITING [None]
